FAERS Safety Report 13719839 (Version 1)
Quarter: 2017Q3

REPORT INFORMATION
  Report Type: Spontaneous
  Country: US (occurrence: US)
  Receive Date: 20170705
  Receipt Date: 20170705
  Transmission Date: 20171127
  Serious: Yes (Hospitalization)
  Sender: FDA-Public Use
  Company Number: US-VIFOR (INTERNATIONAL) INC.-VIT-2017-00424

PATIENT
  Age: 65 Year
  Sex: Male
  Weight: 81.72 kg

DRUGS (1)
  1. VELTASSA [Suspect]
     Active Substance: PATIROMER
     Indication: BLOOD POTASSIUM INCREASED
     Route: 048
     Dates: start: 20161220

REACTIONS (6)
  - Pain [Not Recovered/Not Resolved]
  - Product physical consistency issue [Unknown]
  - Product taste abnormal [Unknown]
  - Toe amputation [Not Recovered/Not Resolved]
  - Gait disturbance [Not Recovered/Not Resolved]
  - Peripheral vascular disorder [Unknown]

NARRATIVE: CASE EVENT DATE: 2017
